FAERS Safety Report 9649073 (Version 1)
Quarter: 2013Q4

REPORT INFORMATION
  Report Type: Spontaneous
  Country: US (occurrence: US)
  Receive Date: 20131028
  Receipt Date: 20131028
  Transmission Date: 20140711
  Serious: Yes (Other)
  Sender: FDA-Public Use
  Company Number: CHPA2013US016185

PATIENT
  Age: 68 Year
  Sex: Male

DRUGS (1)
  1. MAALOX ANTACID BARRIER [Suspect]
     Indication: DYSPEPSIA
     Dosage: UNK, UNK
     Route: 048
     Dates: end: 20131021

REACTIONS (2)
  - Cerebrovascular accident [Unknown]
  - Blindness [Unknown]
